FAERS Safety Report 19695248 (Version 3)
Quarter: 2021Q4

REPORT INFORMATION
  Report Type: Report from Study
  Country: AR (occurrence: AR)
  Receive Date: 20210812
  Receipt Date: 20211201
  Transmission Date: 20220303
  Serious: Yes (Other)
  Sender: FDA-Public Use
  Company Number: NVSC2020AR004067

PATIENT
  Age: 44 Year
  Sex: Female
  Weight: 100 kg

DRUGS (1)
  1. COSENTYX [Suspect]
     Active Substance: SECUKINUMAB
     Indication: Psoriasis
     Dosage: 300 MG, QMO
     Route: 058
     Dates: start: 20190408

REACTIONS (12)
  - Obesity [Not Recovered/Not Resolved]
  - Blood cholesterol increased [Unknown]
  - Visual impairment [Unknown]
  - Psoriasis [Unknown]
  - Pruritus [Unknown]
  - Skin plaque [Not Recovered/Not Resolved]
  - Skin exfoliation [Unknown]
  - Erythema [Unknown]
  - Feeling of despair [Unknown]
  - Arthralgia [Unknown]
  - Bone pain [Unknown]
  - Product availability issue [Unknown]

NARRATIVE: CASE EVENT DATE: 20200101
